FAERS Safety Report 6008089-3 (Version None)
Quarter: 2008Q4

REPORT INFORMATION
  Report Type: 
  Country: None (occurrence: None)
  Receive Date: 20081215
  Receipt Date: 20081204
  Transmission Date: 20090506
  Serious: Yes (Hospitalization)
  Sender: FDA-Public Use
  Company Number: 2008SP024896

PATIENT
  Age: 84 Year
  Sex: Female

DRUGS (7)
  1. DIAFUSOR (GLYCERYL TRINITRATE) [Suspect]
     Dosage: CUT
     Dates: end: 20040801
  2. CORVASAL (MOLSIDOMINE) [Suspect]
     Dosage: PO
     Route: 048
     Dates: end: 20040106
  3. PAROXETINE HYDROCHLORIDE [Suspect]
     Dates: end: 20040104
  4. SECTRAL [Concomitant]
  5. NEO-MERCAZOLE TAB [Concomitant]
  6. ASPEGIC 325 [Concomitant]
  7. IKOREL [Concomitant]

REACTIONS (1)
  - HALLUCINATION [None]
